FAERS Safety Report 4344571-2 (Version None)
Quarter: 2004Q1

REPORT INFORMATION
  Report Type: 
  Country: None (occurrence: None)
  Receive Date: 20040325
  Receipt Date: 20040120
  Transmission Date: 20041129
  Serious: No
  Sender: FDA-Public Use
  Company Number: USA031254221

PATIENT
  Age: 73 Year
  Sex: Female

DRUGS (6)
  1. FORTEO [Suspect]
     Indication: OSTEOPOROSIS
     Dates: start: 20030916
  2. THYROID TAB [Concomitant]
  3. CALCIUM [Concomitant]
  4. GLUCOSAMINE CHONDROITIN [Concomitant]
  5. VITAMIN C [Concomitant]
  6. VITAMIN E [Concomitant]

REACTIONS (3)
  - BLOOD CALCIUM INCREASED [None]
  - CALCIUM IONISED INCREASED [None]
  - DIARRHOEA [None]
